FAERS Safety Report 5371288-8 (Version None)
Quarter: 2007Q2

REPORT INFORMATION
  Report Type: 
  Country: None (occurrence: None)
  Receive Date: 20070615
  Receipt Date: 20061218
  Transmission Date: 20071010
  Serious: Yes (Other)
  Sender: FDA-Public Use
  Company Number: 200618621US

PATIENT
  Age: 53 Year
  Sex: Female
  Weight: 79.3 kg

DRUGS (5)
  1. LANTUS [Suspect]
     Indication: DIABETES MELLITUS INSULIN-DEPENDENT
     Dosage: 35 U QD SC
     Route: 058
     Dates: start: 20060701
  2. ASPIRIN [Concomitant]
  3. PREDNISONE [Concomitant]
  4. INSULIN ZINC SUSPENSION (INSULIN LENTE/00030503/) [Concomitant]
  5. INSULIN (HUMALOG /00030501/) [Concomitant]

REACTIONS (8)
  - BLOOD GLUCOSE DECREASED [None]
  - FUNGAL INFECTION [None]
  - HYPERGLYCAEMIA [None]
  - MALAISE [None]
  - POLLAKIURIA [None]
  - THIRST [None]
  - URTICARIA [None]
  - VISUAL DISTURBANCE [None]
